FAERS Safety Report 12728380 (Version 1)
Quarter: 2016Q3

REPORT INFORMATION
  Report Type: Spontaneous
  Country: GB (occurrence: GB)
  Receive Date: 20160909
  Receipt Date: 20160909
  Transmission Date: 20161109
  Serious: Yes (Disabling, Other)
  Sender: FDA-Public Use
  Company Number: GB-ASTRAZENECA-2016SE94416

PATIENT
  Age: 69 Year
  Sex: Female
  Weight: 60.8 kg

DRUGS (11)
  1. ROSUVASTATIN. [Suspect]
     Active Substance: ROSUVASTATIN
     Indication: BLOOD CHOLESTEROL INCREASED
     Dosage: 40.0MG UNKNOWN
     Route: 048
     Dates: start: 20141019, end: 20160819
  2. EZETROL [Suspect]
     Active Substance: EZETIMIBE
     Indication: BLOOD CHOLESTEROL INCREASED
     Dosage: 40.0MG UNKNOWN
     Route: 048
     Dates: start: 20141019, end: 20160819
  3. EZETROL [Suspect]
     Active Substance: EZETIMIBE
     Indication: BLOOD CHOLESTEROL INCREASED
     Dosage: 10.0MG UNKNOWN
     Route: 048
     Dates: start: 20160819
  4. CLOFIBRATE [Suspect]
     Active Substance: CLOFIBRATE
     Indication: BLOOD CHOLESTEROL INCREASED
     Dosage: 10.0MG UNKNOWN
     Route: 048
     Dates: start: 20160819
  5. PRAVASTATIN. [Suspect]
     Active Substance: PRAVASTATIN
     Indication: BLOOD CHOLESTEROL INCREASED
     Dosage: 10.0MG UNKNOWN
     Route: 048
     Dates: start: 20160819
  6. IBUPROFEN. [Concomitant]
     Active Substance: IBUPROFEN
  7. ATORVASTATIN [Suspect]
     Active Substance: ATORVASTATIN
     Indication: BLOOD CHOLESTEROL INCREASED
     Dosage: 10.0MG UNKNOWN
     Route: 048
     Dates: start: 20160819
  8. ROSUVASTATIN. [Suspect]
     Active Substance: ROSUVASTATIN
     Indication: BLOOD CHOLESTEROL INCREASED
     Dosage: 10.0MG UNKNOWN
     Route: 048
     Dates: start: 20160819
  9. ATORVASTATIN [Suspect]
     Active Substance: ATORVASTATIN
     Indication: BLOOD CHOLESTEROL INCREASED
     Dosage: 40.0MG UNKNOWN
     Route: 048
     Dates: start: 20141019, end: 20160819
  10. CLOFIBRATE [Suspect]
     Active Substance: CLOFIBRATE
     Indication: BLOOD CHOLESTEROL INCREASED
     Dosage: 40.0MG UNKNOWN
     Route: 048
     Dates: start: 20141019, end: 20160819
  11. PRAVASTATIN. [Suspect]
     Active Substance: PRAVASTATIN
     Indication: BLOOD CHOLESTEROL INCREASED
     Dosage: 40.0MG UNKNOWN
     Route: 048
     Dates: start: 20141019, end: 20160819

REACTIONS (3)
  - Arthropathy [Unknown]
  - Sleep disorder due to a general medical condition [Unknown]
  - Pain [Not Recovered/Not Resolved]

NARRATIVE: CASE EVENT DATE: 20141031
